FAERS Safety Report 6921496-7 (Version None)
Quarter: 2010Q3

REPORT INFORMATION
  Report Type: 
  Country: None (occurrence: None)
  Receive Date: 20100812
  Receipt Date: 20100804
  Transmission Date: 20110219
  Serious: Yes (Hospitalization)
  Sender: FDA-Public Use
  Company Number: PHHO2010CO06352

PATIENT
  Sex: Male
  Weight: 97.3 kg

DRUGS (8)
  1. NEORAL [Suspect]
     Indication: RENAL TRANSPLANT
     Dosage: 200 MG DAILY
     Route: 048
     Dates: start: 20100206
  2. CERTICAN [Suspect]
     Dosage: 35 MG DAILY
     Route: 048
     Dates: start: 20100206
  3. COZAAR [Suspect]
  4. LASIX [Suspect]
  5. FUROSEMIDE [Suspect]
  6. PREDNISONE TAB [Concomitant]
     Dosage: 5 MG DAILY
     Route: 048
     Dates: start: 20100206
  7. BACTRIM [Concomitant]
  8. MACRODANTIN [Concomitant]

REACTIONS (7)
  - BLOOD CREATININE INCREASED [None]
  - BLOOD PARATHYROID HORMONE INCREASED [None]
  - HYPERCALCAEMIA [None]
  - PARATHYROIDECTOMY [None]
  - RENAL FAILURE ACUTE [None]
  - TRANSPLANT REJECTION [None]
  - TUBULOINTERSTITIAL NEPHRITIS [None]
